FAERS Safety Report 5609129-3 (Version None)
Quarter: 2008Q1

REPORT INFORMATION
  Report Type: 
  Country: None (occurrence: None)
  Receive Date: 20080130
  Receipt Date: 20080130
  Transmission Date: 20080703
  Serious: Yes (Life-Threatening, Hospitalization)
  Sender: FDA-Public Use
  Company Number: None

PATIENT
  Age: 92 Year
  Sex: Female
  Weight: 41.7309 kg

DRUGS (2)
  1. NAPROSYN [Suspect]
     Indication: BACK PAIN
     Dosage: 500 MG (1 TAB) 1 TABLET 2XDAY ORAL
     Route: 048
     Dates: start: 20071029, end: 20071102
  2. VICODIN [Suspect]
     Dosage: 1-2 TAB EVERY 4 HOURS ORAL
     Route: 048
     Dates: start: 20071029, end: 20071102

REACTIONS (5)
  - DIARRHOEA [None]
  - GASTRIC ULCER [None]
  - HAEMORRHAGE [None]
  - MELAENA [None]
  - VOMITING [None]
